FAERS Safety Report 23180675 (Version 1)
Quarter: 2023Q4

REPORT INFORMATION
  Report Type: Other
  Country: US (occurrence: None)
  Receive Date: 20231114
  Receipt Date: 20231114
  Transmission Date: 20240109
  Serious: Yes (Hospitalization, Other)
  Sender: FDA-Public Use
  Company Number: US-ROCHE-3450979

PATIENT
  Age: 45 Year
  Sex: Female
  Weight: 93.524 kg

DRUGS (17)
  1. OCREVUS [Suspect]
     Active Substance: OCRELIZUMAB
     Indication: Multiple sclerosis
     Dosage: DATE OF TREATMENT: 02/6/2023
     Route: 042
     Dates: start: 202208, end: 20230206
  2. KEPPRA [Concomitant]
     Active Substance: LEVETIRACETAM
  3. ONDANSETRON [Concomitant]
     Active Substance: ONDANSETRON
  4. PROMETHEGAN [Concomitant]
     Active Substance: PROMETHAZINE HYDROCHLORIDE
  5. TIZANIDINE HYDROCHLORIDE [Concomitant]
     Active Substance: TIZANIDINE HYDROCHLORIDE
  6. FLUOXETINE HYDROCHLORIDE [Concomitant]
     Active Substance: FLUOXETINE HYDROCHLORIDE
  7. SOLIFENACIN [Concomitant]
     Active Substance: SOLIFENACIN
  8. LEVOTHYROXINE [Concomitant]
     Active Substance: LEVOTHYROXINE
  9. NOVOLOG [Concomitant]
     Active Substance: INSULIN ASPART
  10. TOPIRAMATE [Concomitant]
     Active Substance: TOPIRAMATE
  11. PANTOPRAZOLE SODIUM [Concomitant]
     Active Substance: PANTOPRAZOLE SODIUM
  12. PREMARIN [Concomitant]
     Active Substance: ESTROGENS, CONJUGATED
  13. MONTELUKAST [Concomitant]
     Active Substance: MONTELUKAST SODIUM
  14. CYMBALTA [Concomitant]
     Active Substance: DULOXETINE HYDROCHLORIDE
  15. AMITRIPTYLINE HYDROCHLORIDE [Concomitant]
     Active Substance: AMITRIPTYLINE HYDROCHLORIDE
  16. PRAVASTATIN SODIUM [Concomitant]
     Active Substance: PRAVASTATIN SODIUM
  17. EMGALITY [Concomitant]
     Active Substance: GALCANEZUMAB-GNLM

REACTIONS (7)
  - Seizure [Unknown]
  - Somnolence [Recovered/Resolved]
  - Cyst [Recovered/Resolved]
  - Urinary tract infection [Recovered/Resolved]
  - Off label use [Unknown]
  - Haemorrhage [Unknown]
  - Thinking abnormal [Not Recovered/Not Resolved]

NARRATIVE: CASE EVENT DATE: 20220801
